FAERS Safety Report 9282185 (Version 1)
Quarter: 2013Q2

REPORT INFORMATION
  Report Type: Spontaneous
  Country: US (occurrence: None)
  Receive Date: 20130508
  Receipt Date: 20130508
  Transmission Date: 20140414
  Serious: Yes (Hospitalization)
  Sender: FDA-Public Use
  Company Number: None

PATIENT
  Age: 77 Year
  Sex: Male
  Weight: 100.6 kg

DRUGS (15)
  1. CYTOXAN [Suspect]
     Indication: METASTATIC MALIGNANT MELANOMA
     Route: 048
     Dates: start: 20121204, end: 20130122
  2. IPILIMUMAB [Suspect]
     Route: 042
     Dates: start: 20121204, end: 20130122
  3. TRICOR [Concomitant]
  4. PRAVISTATIN [Concomitant]
  5. METFORMIN ER [Concomitant]
  6. GLIPIZIDE XL [Concomitant]
  7. BENICAR [Concomitant]
  8. CARVEDILOL [Concomitant]
  9. SYNTHROID [Concomitant]
  10. HYDROCHLOROTHIAZIDE [Concomitant]
  11. NIACIN [Concomitant]
  12. ASPIRIN [Concomitant]
  13. ALPHA LIPOID ACID [Concomitant]
  14. MEGA FISH OIL [Concomitant]
  15. KAOPECTATE [Concomitant]

REACTIONS (5)
  - Cognitive disorder [None]
  - Decubitus ulcer [None]
  - Diarrhoea [None]
  - Hyperglycaemia [None]
  - Blood creatine abnormal [None]
